FAERS Safety Report 5493635-9 (Version None)
Quarter: 2007Q4

REPORT INFORMATION
  Report Type: 
  Country: None (occurrence: None)
  Receive Date: 20071015
  Receipt Date: 20070904
  Transmission Date: 20080405
  Serious: No
  Sender: FDA-Public Use
  Company Number: 2007SP003074

PATIENT
  Age: 66 Year
  Sex: Female
  Weight: 88.4514 kg

DRUGS (3)
  1. LUNESTA [Suspect]
     Indication: SLEEP DISORDER
     Dosage: 2 MG; PRN; ORAL
     Route: 048
     Dates: start: 20070701
  2. ZYPREXA [Concomitant]
  3. VITAMINS [Concomitant]

REACTIONS (1)
  - DYSGEUSIA [None]
